FAERS Safety Report 8042051-4 (Version None)
Quarter: 2011Q4

REPORT INFORMATION
  Report Type: 
  Country: None (occurrence: None)
  Receive Date: 20111202
  Receipt Date: 20110629
  Transmission Date: 20120403
  Serious: Yes (Other)
  Sender: FDA-Public Use
  Company Number: 2011SP030603

PATIENT
  Age: 31 Year
  Sex: Female
  Weight: 60.3284 kg

DRUGS (1)
  1. NUVARING [Suspect]
     Indication: PRODUCT USED FOR UNKNOWN INDICATION

REACTIONS (5)
  - ANGIOPATHY [None]
  - STRESS [None]
  - ACNE [None]
  - ALOPECIA [None]
  - DEEP VEIN THROMBOSIS [None]
